FAERS Safety Report 15475373 (Version 1)
Quarter: 2018Q4

REPORT INFORMATION
  Report Type: Spontaneous
  Country: US (occurrence: US)
  Receive Date: 20181008
  Receipt Date: 20181008
  Transmission Date: 20190205
  Serious: No
  Sender: FDA-Public Use
  Company Number: US-SA-2018SA275437

PATIENT
  Sex: Male

DRUGS (1)
  1. GOLD BOND MEDICATED ORIGINAL STRENGTH BODY LOTION [Suspect]
     Active Substance: DIMETHICONE\MENTHOL\PRAMOXINE HYDROCHLORIDE

REACTIONS (1)
  - Pruritus [Unknown]
